FAERS Safety Report 7717026-2 (Version None)
Quarter: 2011Q3

REPORT INFORMATION
  Report Type: 
  Country: None (occurrence: None)
  Receive Date: 20110829
  Receipt Date: 20110817
  Transmission Date: 20111222
  Serious: Yes (Other)
  Sender: FDA-Public Use
  Company Number: AR-GENENTECH-323491

PATIENT
  Age: 50 Year
  Sex: Female

DRUGS (1)
  1. XOLAIR [Suspect]
     Indication: ASTHMA
     Dosage: 2 AMP, 1/MONTH
     Route: 065
     Dates: end: 20110801

REACTIONS (2)
  - HYPOTENSION [None]
  - ADRENAL INSUFFICIENCY [None]
